FAERS Safety Report 23264025 (Version 1)
Quarter: 2023Q4

REPORT INFORMATION
  Report Type: Spontaneous
  Country: CN (occurrence: CN)
  Receive Date: 20231205
  Receipt Date: 20231205
  Transmission Date: 20240110
  Serious: Yes (Life-Threatening)
  Sender: FDA-Public Use
  Company Number: CN-Merck Healthcare KGaA-2023490963

PATIENT
  Age: 73 Year
  Sex: Female

DRUGS (1)
  1. ERBITUX [Suspect]
     Active Substance: CETUXIMAB
     Indication: Paranasal sinus neoplasm
     Dosage: UNK UNK, UNKNOWN
     Route: 042
     Dates: start: 20231123

REACTIONS (5)
  - Syncope [Unknown]
  - Feeling cold [Unknown]
  - Chest discomfort [Recovering/Resolving]
  - Malaise [Recovering/Resolving]
  - Blood pressure decreased [Recovering/Resolving]

NARRATIVE: CASE EVENT DATE: 20231123
